FAERS Safety Report 21382528 (Version 3)
Quarter: 2023Q4

REPORT INFORMATION
  Report Type: Other
  Country: CA (occurrence: None)
  Receive Date: 20220927
  Receipt Date: 20231123
  Transmission Date: 20240109
  Serious: No
  Sender: FDA-Public Use
  Company Number: CA-ROCHE-3186384

PATIENT
  Age: 48 Year
  Sex: Female

DRUGS (8)
  1. OCREVUS [Suspect]
     Active Substance: OCRELIZUMAB
     Indication: Relapsing-remitting multiple sclerosis
     Dosage: MORE DOSAGE INFORMATION IS 300 MG AT DAY 0 AND 14, THEN 600 MG EVERY 6 MONTH
     Route: 042
     Dates: start: 20220407
  2. SYNTHROID [Concomitant]
     Active Substance: LEVOTHYROXINE SODIUM
     Dosage: 20 AND 25 MCG
  3. CANDESARTAN [Concomitant]
     Active Substance: CANDESARTAN
  4. CLONIDINE [Concomitant]
     Active Substance: CLONIDINE
     Dosage: 2 IN THE MORNING AND 2 AT NIGHT
  5. MODAFINIL [Concomitant]
     Active Substance: MODAFINIL
     Dosage: 4 TABS A DAY
  6. AMITRIPTYLINE [Concomitant]
     Active Substance: AMITRIPTYLINE
     Dosage: AT NIGHT
  7. BACLOFEN [Concomitant]
     Active Substance: BACLOFEN
     Dosage: 3TABS AT NIGHT
  8. DEXILANT [Concomitant]
     Active Substance: DEXLANSOPRAZOLE

REACTIONS (1)
  - COVID-19 [Not Recovered/Not Resolved]

NARRATIVE: CASE EVENT DATE: 20220912
